FAERS Safety Report 6988462-7 (Version None)
Quarter: 2010Q3

REPORT INFORMATION
  Report Type: 
  Country: None (occurrence: None)
  Receive Date: 20100916
  Receipt Date: 20100907
  Transmission Date: 20110219
  Serious: Yes (Other)
  Sender: FDA-Public Use
  Company Number: US-AMGEN-KDL434660

PATIENT
  Sex: Male
  Weight: 61.7 kg

DRUGS (2)
  1. NPLATE [Suspect]
     Indication: IDIOPATHIC THROMBOCYTOPENIC PURPURA
     Route: 058
     Dates: start: 20090219, end: 20090512
  2. RITUXIMAB [Concomitant]
     Dates: start: 20080918, end: 20081021

REACTIONS (1)
  - PLATELET COUNT INCREASED [None]
